FAERS Safety Report 8810726 (Version 1)
Quarter: 2012Q4

REPORT INFORMATION
  Report Type: 
  Country: US (occurrence: US)
  Receive Date: 20120927
  Receipt Date: 20120927
  Transmission Date: 20130627
  Serious: No
  Sender: FDA-Public Use
  Company Number: US-PFIZER INC-2012186053

PATIENT
  Age: 62 Year
  Sex: Female
  Weight: 52.61 kg

DRUGS (2)
  1. FLECTOR [Suspect]
     Indication: BURSITIS
     Dosage: UNK, 2X/day
     Dates: start: 201208
  2. CELEBREX [Concomitant]
     Indication: ARTHRITIS
     Dosage: UNK

REACTIONS (1)
  - No adverse event [Unknown]
